FAERS Safety Report 17908937 (Version 7)
Quarter: 2020Q4

REPORT INFORMATION
  Report Type: Spontaneous
  Country: JP (occurrence: JP)
  Receive Date: 20200617
  Receipt Date: 20201029
  Transmission Date: 20210113
  Serious: Yes (Other)
  Sender: FDA-Public Use
  Company Number: NVSJ2020JP005881

PATIENT
  Age: 7 Month
  Sex: Male
  Weight: 7.12 kg

DRUGS (11)
  1. PREDNISOLONE. [Concomitant]
     Active Substance: PREDNISOLONE
     Indication: PRODUCT USED FOR UNKNOWN INDICATION
     Dosage: 1 MG/KG, QD
     Route: 048
     Dates: start: 20200610, end: 20200614
  2. PREDNISOLONE. [Concomitant]
     Active Substance: PREDNISOLONE
     Dosage: 1 MG/KG, QD
     Route: 048
     Dates: start: 20200623
  3. PREDNISOLONE. [Concomitant]
     Active Substance: PREDNISOLONE
     Dosage: 2 MG/KG, TID
     Route: 048
     Dates: start: 20200615, end: 20200622
  4. GASMOTIN [Concomitant]
     Active Substance: MOSAPRIDE CITRATE
     Indication: PRODUCT USED FOR UNKNOWN INDICATION
     Dosage: 8 MG/DAY
     Route: 065
     Dates: start: 20200429
  5. PREDNISOLONE. [Concomitant]
     Active Substance: PREDNISOLONE
     Dosage: 0.5 MG/KG, QD
     Route: 048
  6. CARBOCISTEINE [Concomitant]
     Active Substance: CARBOCYSTEINE
     Indication: PRODUCT USED FOR UNKNOWN INDICATION
     Dosage: 220 MG/DAY
     Route: 065
     Dates: start: 20200102
  7. ZOLGENSMA [Suspect]
     Active Substance: ONASEMNOGENE ABEPARVOVEC-XIOI
     Indication: SPINAL MUSCULAR ATROPHY
     Dosage: 1.1X10?14VG/KG
     Route: 041
     Dates: start: 20200611
  8. PREDNISOLONE. [Concomitant]
     Active Substance: PREDNISOLONE
     Dosage: 0.25 MG/KG, QD
     Route: 048
  9. MUCOSAL [Concomitant]
     Indication: PRODUCT USED FOR UNKNOWN INDICATION
     Dosage: 6 MG/DAY
     Route: 065
     Dates: start: 20200102
  10. GASTER [Concomitant]
     Active Substance: FAMOTIDINE
     Indication: PRODUCT USED FOR UNKNOWN INDICATION
     Dosage: 7 MG/DAY
     Route: 065
     Dates: start: 20200404
  11. FERROUS CITRATE NA [Concomitant]
     Active Substance: SODIUM FERROUS CITRATE
     Indication: PRODUCT USED FOR UNKNOWN INDICATION
     Dosage: 10 MG/DAY
     Route: 065
     Dates: start: 20200116

REACTIONS (12)
  - Hepatic enzyme increased [Recovering/Resolving]
  - Aspartate aminotransferase increased [Recovering/Resolving]
  - Serum ferritin increased [Unknown]
  - Tachycardia [Unknown]
  - Pyrexia [Recovering/Resolving]
  - Blood lactate dehydrogenase increased [Recovering/Resolving]
  - Nausea [Unknown]
  - Bronchitis [Unknown]
  - Vomiting [Unknown]
  - Alanine aminotransferase increased [Recovering/Resolving]
  - Brain natriuretic peptide increased [Recovering/Resolving]
  - Atelectasis [Unknown]

NARRATIVE: CASE EVENT DATE: 20200613
